FAERS Safety Report 5803916-4 (Version None)
Quarter: 2008Q3

REPORT INFORMATION
  Report Type: 
  Country: None (occurrence: None)
  Receive Date: 20080708
  Receipt Date: 20080626
  Transmission Date: 20090109
  Serious: Yes (Hospitalization)
  Sender: FDA-Public Use
  Company Number: CA-PFIZER INC-2008053649

PATIENT
  Age: 42 Year
  Sex: Female
  Weight: 109 kg

DRUGS (1)
  1. SU-011,248 [Suspect]
     Indication: CERVIX CARCINOMA
     Dosage: DAILY DOSE:50MG-FREQ:EVERY DAY FOR FOUR WEEKS CYCLE 6 WEEKS
     Route: 048
     Dates: start: 20071106, end: 20080107

REACTIONS (1)
  - GASTROINTESTINAL FISTULA [None]
